FAERS Safety Report 6716248-7 (Version None)
Quarter: 2010Q2

REPORT INFORMATION
  Report Type: 
  Country: None (occurrence: None)
  Receive Date: 20100507
  Receipt Date: 20100503
  Transmission Date: 20101027
  Serious: Yes (Hospitalization)
  Sender: FDA-Public Use
  Company Number: DE-BRISTOL-MYERS SQUIBB COMPANY-15071889

PATIENT
  Age: 77 Year
  Sex: Female

DRUGS (4)
  1. CETUXIMAB [Suspect]
     Indication: NON-SMALL CELL LUNG CANCER
     Dosage: FORMULATION 5 MG/ML,ONGOING,RECENT INFUSION ON 13-APR-2010.
     Route: 042
     Dates: start: 20100323, end: 20100413
  2. CISPLATIN [Suspect]
     Indication: NON-SMALL CELL LUNG CANCER
     Dosage: ONGOING; RECENT INFUSION ON 13-APR-2010,
     Route: 042
     Dates: start: 20100323, end: 20100413
  3. CILENGITIDE [Suspect]
     Indication: NON-SMALL CELL LUNG CANCER
     Dosage: ONGOING,RECENT INFUSION ON 13-APR-2010.
     Route: 042
     Dates: start: 20100323, end: 20100413
  4. GEMCITABINE HCL [Suspect]
     Indication: NON-SMALL CELL LUNG CANCER
     Dosage: ONGOING,RECENT INFUSION ON 13-APR-2010.
     Route: 042
     Dates: start: 20100323, end: 20100413

REACTIONS (1)
  - DEEP VEIN THROMBOSIS [None]
